FAERS Safety Report 6196779-1 (Version None)
Quarter: 2009Q2

REPORT INFORMATION
  Report Type: 
  Country: None (occurrence: None)
  Receive Date: 20090520
  Receipt Date: 20090511
  Transmission Date: 20091009
  Serious: Yes (Other)
  Sender: FDA-Public Use
  Company Number: PHHY2009DE05446

PATIENT
  Age: 74 Year
  Sex: Male

DRUGS (5)
  1. EXFORGE [Suspect]
     Indication: HYPERTENSION
     Dosage: 1 DF, BID
     Dates: start: 20090120
  2. RASILEZ [Suspect]
     Indication: HYPERTENSION
     Dosage: 150 MG/DAY
     Dates: start: 20081120, end: 20090130
  3. RASILEZ [Suspect]
     Dosage: 300 MG/DAY
     Dates: start: 20090130
  4. CARMEN [Concomitant]
     Dosage: UNK
     Dates: end: 20090101
  5. ATACAND [Concomitant]
     Dosage: UNK
     Dates: end: 20090101

REACTIONS (12)
  - ATRIAL FLUTTER [None]
  - BLOOD PRESSURE SYSTOLIC INCREASED [None]
  - CONCOMITANT DISEASE AGGRAVATED [None]
  - COUGH [None]
  - DRY THROAT [None]
  - FLATULENCE [None]
  - FLUSHING [None]
  - INFLUENZA LIKE ILLNESS [None]
  - JOINT SWELLING [None]
  - PLATELET COUNT DECREASED [None]
  - ROSACEA [None]
  - WHITE BLOOD CELL COUNT DECREASED [None]
